FAERS Safety Report 6879437-7 (Version None)
Quarter: 2010Q3

REPORT INFORMATION
  Report Type: 
  Country: None (occurrence: None)
  Receive Date: 20100728
  Receipt Date: 20100722
  Transmission Date: 20110219
  Serious: Yes (Death, Hospitalization, Other)
  Sender: FDA-Public Use
  Company Number: PHHY2010FR48365

PATIENT
  Sex: Male

DRUGS (10)
  1. ICL670A ICL+ [Suspect]
     Indication: MYELODYSPLASTIC SYNDROME
     Dosage: 26 MG/KG/DAY
     Dates: start: 20080425, end: 20100718
  2. BISOPROLOL [Concomitant]
     Indication: HYPERTENSION
     Dosage: 10 MG/DAILY
     Dates: start: 20070101
  3. ALDACTONE [Concomitant]
     Indication: HYPERTENSION
     Dosage: 75 MG,DAILY
     Dates: start: 20070101
  4. ARIXTRA [Concomitant]
     Indication: THROMBOSIS
     Dosage: UNK
     Dates: start: 20070101
  5. PLAVIX [Concomitant]
     Indication: CORONARY ARTERY DISEASE
     Dosage: 75 MG , DAILY
     Dates: start: 20070101
  6. HYDREA [Concomitant]
     Indication: LEUKAEMIA
     Dosage: 5 DAYS BY WEEK
     Dates: start: 20090501
  7. NOVONORM [Concomitant]
     Indication: TYPE 2 DIABETES MELLITUS
     Dosage: 2 MG, TID
  8. ORACILLINE [Concomitant]
     Indication: INFECTION
     Dosage: 1 MG, TID
     Dates: start: 20100718
  9. OMEPRAZOLE [Concomitant]
     Indication: GASTRIC DISORDER
     Dosage: 20 MG DAILY
  10. AVANDIA [Concomitant]
     Indication: TYPE 2 DIABETES MELLITUS
     Dosage: 2 MG DAILY

REACTIONS (13)
  - ACUTE RESPIRATORY FAILURE [None]
  - BACTERIAL INFECTION [None]
  - DIARRHOEA [None]
  - GENERAL PHYSICAL HEALTH DETERIORATION [None]
  - HEPATIC FAILURE [None]
  - HYPERTHERMIA [None]
  - IMMUNOSUPPRESSION [None]
  - LOBAR PNEUMONIA [None]
  - LUNG DISORDER [None]
  - MULTI-ORGAN FAILURE [None]
  - PNEUMONIA STREPTOCOCCAL [None]
  - RENAL FAILURE ACUTE [None]
  - SEPTIC SHOCK [None]
